FAERS Safety Report 22267422 (Version 1)
Quarter: 2023Q2

REPORT INFORMATION
  Report Type: Spontaneous
  Country: BR (occurrence: None)
  Receive Date: 20230428
  Receipt Date: 20230428
  Transmission Date: 20230721
  Serious: Yes (Other)
  Sender: FDA-Public Use
  Company Number: BR-ROCHE-3340178

PATIENT
  Age: 58 Year
  Sex: Male

DRUGS (3)
  1. TECENTRIQ [Suspect]
     Active Substance: ATEZOLIZUMAB
     Indication: Small cell lung cancer
     Dosage: MOST RECENT INFUSION: APR/2023
     Route: 065
     Dates: start: 201907
  2. PREDNISONE [Concomitant]
     Active Substance: PREDNISONE
     Indication: Adrenal insufficiency
  3. CISPLATIN\ETOPOSIDE [Concomitant]
     Active Substance: CISPLATIN\ETOPOSIDE
     Indication: Small cell lung cancer
     Dates: start: 201907

REACTIONS (3)
  - Nervous system disorder [Unknown]
  - Brain injury [Unknown]
  - Pruritus [Unknown]

NARRATIVE: CASE EVENT DATE: 20210201
